FAERS Safety Report 5824942-5 (Version None)
Quarter: 2008Q3

REPORT INFORMATION
  Report Type: 
  Country: None (occurrence: None)
  Receive Date: 20080728
  Receipt Date: 20080716
  Transmission Date: 20090109
  Serious: Yes (Hospitalization)
  Sender: FDA-Public Use
  Company Number: US-PFIZER INC-2008049686

PATIENT
  Sex: Male

DRUGS (1)
  1. TIKOSYN [Suspect]
     Route: 048

REACTIONS (1)
  - UNEVALUABLE EVENT [None]
